FAERS Safety Report 12388382 (Version 1)
Quarter: 2016Q2

REPORT INFORMATION
  Report Type: Report from Study
  Country: CA (occurrence: CA)
  Receive Date: 20160520
  Receipt Date: 20160520
  Transmission Date: 20160815
  Serious: Yes (Other)
  Sender: FDA-Public Use
  Company Number: PHHY2012CA127441

PATIENT
  Age: 66 Year
  Sex: Female

DRUGS (11)
  1. FOLATE [Concomitant]
     Active Substance: FOLATE SODIUM
     Indication: FOLATE DEFICIENCY
     Dosage: 400 UG, QD
     Route: 065
     Dates: start: 201211
  2. ZOPICLONE [Concomitant]
     Active Substance: ZOPICLONE
     Dosage: 7.5 MG, QHS
     Route: 065
  3. IMOVANE [Concomitant]
     Active Substance: ZOPICLONE
     Indication: PRODUCT USED FOR UNKNOWN INDICATION
     Dosage: UNK
     Route: 065
  4. PROMETRIUM [Concomitant]
     Active Substance: PROGESTERONE
     Indication: PRODUCT USED FOR UNKNOWN INDICATION
     Dosage: UNK
     Route: 065
  5. GLIVEC [Suspect]
     Active Substance: IMATINIB MESYLATE
     Dosage: 300 MG, QD
     Route: 048
  6. GLIVEC [Suspect]
     Active Substance: IMATINIB MESYLATE
     Indication: CHRONIC MYELOID LEUKAEMIA
     Dosage: 400 MG, QD
     Route: 048
     Dates: start: 20100407
  7. AVAPRO [Concomitant]
     Active Substance: IRBESARTAN
     Indication: PRODUCT USED FOR UNKNOWN INDICATION
     Dosage: 15 MG, UNK
     Route: 065
  8. VITAMIN B12 [Concomitant]
     Active Substance: CYANOCOBALAMIN
     Indication: VITAMIN B12 DEFICIENCY
     Dosage: 1000 UG, QD
     Route: 060
     Dates: start: 201211
  9. PROGESTERONE. [Concomitant]
     Active Substance: PROGESTERONE
     Indication: PRODUCT USED FOR UNKNOWN INDICATION
     Dosage: 100 MG, UNK
     Route: 065
  10. ESTROGEN [Concomitant]
     Active Substance: ESTRONE\SUS SCROFA OVARY
     Indication: PRODUCT USED FOR UNKNOWN INDICATION
     Dosage: UNK
     Route: 065
  11. ZOPICLONE [Concomitant]
     Active Substance: ZOPICLONE
     Indication: INSOMNIA
     Dosage: 2.5 MG, QHS
     Route: 065

REACTIONS (29)
  - Myocardial infarction [Unknown]
  - Pyrexia [Unknown]
  - Cough [Unknown]
  - Haematocrit decreased [Unknown]
  - Fatigue [Recovered/Resolved]
  - Abdominal distension [Unknown]
  - Arrhythmia [Unknown]
  - Asthenia [Unknown]
  - Fluid retention [Unknown]
  - Blood pressure increased [Recovering/Resolving]
  - Peripheral swelling [Unknown]
  - Coagulopathy [Unknown]
  - Platelet count decreased [Unknown]
  - Insomnia [Unknown]
  - Swelling [Recovering/Resolving]
  - Intentional self-injury [Unknown]
  - Atrophic glossitis [Not Recovered/Not Resolved]
  - Feeling abnormal [Unknown]
  - Lip injury [Unknown]
  - Oedema peripheral [Unknown]
  - Bone density decreased [Unknown]
  - Mental impairment [Recovering/Resolving]
  - Contusion [Recovering/Resolving]
  - Arthralgia [Unknown]
  - Chills [Unknown]
  - Musculoskeletal stiffness [Unknown]
  - Nasopharyngitis [Unknown]
  - Depressed mood [Unknown]
  - Haemoglobin decreased [Unknown]

NARRATIVE: CASE EVENT DATE: 201404
